FAERS Safety Report 23705093 (Version 1)
Quarter: 2024Q2

REPORT INFORMATION
  Report Type: Spontaneous
  Country: US (occurrence: US)
  Receive Date: 20240404
  Receipt Date: 20240404
  Transmission Date: 20240716
  Serious: No
  Sender: FDA-Public Use
  Company Number: US-SA-2024SA097776

PATIENT
  Age: 11 Year
  Sex: Male

DRUGS (4)
  1. ALPROLIX [Suspect]
     Active Substance: EFTRENONACOG ALFA
     Indication: Factor IX deficiency
     Dosage: 3000 U, QOW FOR BREAKTHROUGH BLEEDS
     Route: 042
     Dates: start: 201708
  2. ALPROLIX [Suspect]
     Active Substance: EFTRENONACOG ALFA
     Indication: Factor IX deficiency
     Dosage: 3000 U, QOW FOR BREAKTHROUGH BLEEDS
     Route: 042
     Dates: start: 201708
  3. ALPROLIX [Suspect]
     Active Substance: EFTRENONACOG ALFA
     Dosage: 3000 U, PRN FOR BREAKTHROUGH BLEEDS
     Route: 042
     Dates: start: 201708
  4. ALPROLIX [Suspect]
     Active Substance: EFTRENONACOG ALFA
     Dosage: 3000 U, PRN FOR BREAKTHROUGH BLEEDS
     Route: 042
     Dates: start: 201708

REACTIONS (2)
  - Fall [Unknown]
  - Traumatic haemorrhage [Not Recovered/Not Resolved]

NARRATIVE: CASE EVENT DATE: 20240324
